FAERS Safety Report 20003151 (Version 2)
Quarter: 2021Q4

REPORT INFORMATION
  Report Type: Report from Study
  Country: US (occurrence: US)
  Receive Date: 20211027
  Receipt Date: 20211230
  Transmission Date: 20220303
  Serious: Yes (Other)
  Sender: FDA-Public Use
  Company Number: US-NOVARTISPH-NVSC2021US241634

PATIENT
  Age: 101 Year
  Sex: Female

DRUGS (1)
  1. BEOVU [Suspect]
     Active Substance: BROLUCIZUMAB-DBLL
     Indication: Product used for unknown indication
     Dosage: UNK, (EVERY 3 MONTHS)
     Route: 065

REACTIONS (6)
  - Eye haemorrhage [Not Recovered/Not Resolved]
  - Eye infection [Unknown]
  - Metamorphopsia [Unknown]
  - Mydriasis [Unknown]
  - Ocular hyperaemia [Unknown]
  - Visual impairment [Unknown]

NARRATIVE: CASE EVENT DATE: 20201101
